FAERS Safety Report 12636417 (Version 2)
Quarter: 2017Q1

REPORT INFORMATION
  Report Type: Spontaneous
  Country: NZ (occurrence: NZ)
  Receive Date: 20160809
  Receipt Date: 20170306
  Transmission Date: 20170428
  Serious: No
  Sender: FDA-Public Use
  Company Number: NZ-AMGEN-NZLSP2016101036

PATIENT
  Age: 75 Year
  Sex: Female

DRUGS (2)
  1. PROLIA [Suspect]
     Active Substance: DENOSUMAB
     Indication: OSTEITIS DEFORMANS
     Dosage: 60 MG, UNK
     Route: 058
     Dates: start: 201303
  2. PROLIA [Suspect]
     Active Substance: DENOSUMAB
     Dosage: 60 MG, UNK
     Route: 058
     Dates: start: 201503

REACTIONS (3)
  - Off label use [Unknown]
  - Therapeutic response unexpected [Unknown]
  - Drug effect decreased [Unknown]
